FAERS Safety Report 22528652 (Version 2)
Quarter: 2023Q4

REPORT INFORMATION
  Report Type: Spontaneous
  Country: US (occurrence: US)
  Receive Date: 20230607
  Receipt Date: 20231230
  Transmission Date: 20240110
  Serious: Yes (Other)
  Sender: FDA-Public Use
  Company Number: US-AUROBINDO-AUR-APL-2023-040088

PATIENT
  Age: 25 Year
  Sex: Female

DRUGS (1)
  1. LOPERAMIDE [Suspect]
     Active Substance: LOPERAMIDE
     Indication: Diarrhoea
     Dosage: 100?150 TABLETS  PER DAY
     Route: 065
     Dates: start: 2019

REACTIONS (9)
  - Cardiac arrest [Unknown]
  - Ventricular tachycardia [Recovering/Resolving]
  - Cardiogenic shock [Unknown]
  - Shock [Unknown]
  - Ventricular arrhythmia [Recovering/Resolving]
  - Atrioventricular block first degree [Recovering/Resolving]
  - Toxicity to various agents [Recovering/Resolving]
  - Intentional product misuse [Unknown]
  - Overdose [Unknown]
